FAERS Safety Report 20263475 (Version 2)
Quarter: 2022Q1

REPORT INFORMATION
  Report Type: Spontaneous
  Country: US (occurrence: US)
  Receive Date: 20211231
  Receipt Date: 20220216
  Transmission Date: 20220424
  Serious: No
  Sender: FDA-Public Use
  Company Number: US-TAKEDA-2021TUS083074

PATIENT
  Sex: Male
  Weight: 81 kg

DRUGS (3)
  1. VPRIV [Suspect]
     Active Substance: VELAGLUCERASE ALFA
     Indication: Gaucher^s disease
     Dosage: 4800 INTERNATIONAL UNIT, MONTHLY
     Route: 065
     Dates: start: 20170630
  2. GAMMAGARD S/D [Suspect]
     Active Substance: HUMAN IMMUNOGLOBULIN G
     Indication: Immunodeficiency common variable
     Dosage: 40 GRAM, MONTHLY
     Route: 065
     Dates: start: 20170630
  3. GAMMAGARD S/D [Suspect]
     Active Substance: HUMAN IMMUNOGLOBULIN G
     Indication: Immunodeficiency common variable
     Dosage: 40 GRAM, MONTHLY
     Route: 065
     Dates: start: 20170630

REACTIONS (2)
  - COVID-19 [Unknown]
  - Adverse drug reaction [Unknown]
